FAERS Safety Report 24613748 (Version 2)
Quarter: 2024Q4

REPORT INFORMATION
  Report Type: Spontaneous
  Country: US (occurrence: US)
  Receive Date: 20241113
  Receipt Date: 20241125
  Transmission Date: 20250115
  Serious: Yes (Other)
  Sender: ARGENX BVBA
  Company Number: US-ARGENX-2024-ARGX-US009887

PATIENT

DRUGS (1)
  1. VYVGART [Suspect]
     Active Substance: EFGARTIGIMOD ALFA-FCAB
     Indication: Myasthenia gravis
     Dosage: UNK
     Route: 042

REACTIONS (10)
  - Kidney infection [Recovering/Resolving]
  - Asthenia [Unknown]
  - Dysphagia [Unknown]
  - Visual impairment [Unknown]
  - Renal pain [Unknown]
  - Condition aggravated [Unknown]
  - Nail discolouration [Unknown]
  - Back pain [Unknown]
  - Dyspnoea [Unknown]
  - Infusion related reaction [Unknown]
